FAERS Safety Report 4610054-5 (Version None)
Quarter: 2005Q1

REPORT INFORMATION
  Report Type: 
  Country: None (occurrence: None)
  Receive Date: 20050316
  Receipt Date: 20050308
  Transmission Date: 20050727
  Serious: Yes (Disabling)
  Sender: FDA-Public Use
  Company Number: GB-GLAXOSMITHKLINE-B0374126A

PATIENT
  Age: 15 Year
  Sex: Female
  Weight: 69 kg

DRUGS (3)
  1. SERETIDE [Suspect]
     Indication: ASTHMA
     Dosage: 2PUFF TWICE PER DAY
     Dates: start: 20041126, end: 20050203
  2. ALBUTEROL [Concomitant]
     Indication: ASTHMA
  3. MOVICOL [Concomitant]
     Indication: CONSTIPATION
     Route: 048

REACTIONS (2)
  - PRURITUS [None]
  - SLEEP DISORDER [None]
